FAERS Safety Report 5224696-X (Version None)
Quarter: 2007Q1

REPORT INFORMATION
  Report Type: 
  Country: None (occurrence: None)
  Receive Date: 20070129
  Receipt Date: 20070129
  Transmission Date: 20070707
  Serious: No
  Sender: FDA-Public Use
  Company Number: None

PATIENT
  Sex: Female
  Weight: 35.3806 kg

DRUGS (1)
  1. ALBUTEROL [Suspect]
     Indication: BRONCHIAL HYPERREACTIVITY
     Dosage: 0.083% Q6-8H
     Dates: end: 20050927

REACTIONS (3)
  - HYPERHIDROSIS [None]
  - LETHARGY [None]
  - TACHYCARDIA [None]
